FAERS Safety Report 5288785-6 (Version None)
Quarter: 2007Q2

REPORT INFORMATION
  Report Type: 
  Country: None (occurrence: None)
  Receive Date: 20070405
  Receipt Date: 20070326
  Transmission Date: 20071010
  Serious: Yes (Other)
  Sender: FDA-Public Use
  Company Number: GB-ELI_LILLY_AND_COMPANY-GB200701004014

PATIENT
  Age: 23 Year
  Sex: Female
  Weight: 59 kg

DRUGS (6)
  1. CYMBALTA [Suspect]
     Indication: DEPRESSION
     Dosage: 60 MG, UNK
     Route: 048
     Dates: start: 20060426, end: 20060630
  2. CYMBALTA [Suspect]
     Dosage: 20 MG, UNK
     Dates: start: 20070620
  3. ZALEPLON [Concomitant]
     Indication: INSOMNIA
     Dosage: 20 MG, AS NEEDED
     Route: 048
  4. ZOLMITRIPTAN [Concomitant]
     Indication: MIGRAINE
     Dosage: 2.5 MG, UNK
     Route: 048
  5. CO-CODAMOL [Concomitant]
     Indication: ARTHRALGIA
     Dosage: 1-2 TABLETS 4 TIMES DAILY, AS NEEDED
     Route: 048
  6. MARVELON [Concomitant]
     Indication: ORAL CONTRACEPTION
     Dosage: UNK, DAILY (1/D)
     Route: 048

REACTIONS (2)
  - AGGRESSION [None]
  - PSYCHIATRIC SYMPTOM [None]
